FAERS Safety Report 9529247 (Version 1)
Quarter: 2013Q1

REPORT INFORMATION
  Report Type: Spontaneous
  Country: US (occurrence: None)
  Receive Date: 20130329
  Receipt Date: 20130329
  Transmission Date: 20140127
  Serious: No
  Sender: FDA-Public Use
  Company Number: 1000042353

PATIENT
  Age: 83 Year
  Sex: Female

DRUGS (14)
  1. LINZESS (LINACLOTIDE) (145 MICROGRAM, CAPSULES) [Suspect]
     Indication: CONSTIPATION
     Route: 048
     Dates: start: 20130131
  2. PREDNISONE [Concomitant]
  3. LISINOPRIL [Concomitant]
  4. SIMVASTATIN [Concomitant]
  5. LEVOXYL (LEVOTHYROXINE SODIUM) [Concomitant]
  6. DOCUSATE SODIUM [Concomitant]
  7. POTASSIUM GLUCONATE [Concomitant]
  8. VITAMIN C (ASCORBIN ACID) [Concomitant]
  9. VITAMIN A [Concomitant]
  10. VITAMIN D [Concomitant]
  11. VITAMIN E [Concomitant]
  12. VITAMIN B12 [Concomitant]
  13. BIOTIN [Concomitant]
  14. FLAXSEED OIL (LINUM USITATISSIMUM SEED OIL [Concomitant]

REACTIONS (1)
  - Diarrhoea [None]
